FAERS Safety Report 8077514-9 (Version None)
Quarter: 2012Q1

REPORT INFORMATION
  Report Type: 
  Country: None (occurrence: None)
  Receive Date: 20120126
  Receipt Date: 20120126
  Transmission Date: 20120608
  Serious: Yes (Other)
  Sender: FDA-Public Use
  Company Number: None

PATIENT
  Age: 70 Year
  Sex: Female

DRUGS (11)
  1. HYDROCODONE BITARTRATE AND ACETAMINOPHEN [Concomitant]
  2. ISOSORBIDE DINITRATE [Concomitant]
  3. LOSARTAN POTASSIUM [Concomitant]
  4. REGULAR INSULIN [Concomitant]
  5. ASPIRIN [Concomitant]
  6. ATENOLOL [Concomitant]
  7. REVLIMID [Suspect]
     Indication: MULTIPLE MYELOMA
     Dosage: 5 MG DAILY X21D/28D ORALLY
     Route: 048
     Dates: start: 20111001
  8. REVLIMID [Suspect]
     Indication: MULTIPLE MYELOMA
     Dosage: 5 MG DAILY X21D/28D ORALLY
     Route: 048
     Dates: start: 20110201, end: 20110501
  9. LASIX [Concomitant]
  10. LEVOTHYROXINE SODIUM [Concomitant]
  11. COLCHICINE [Concomitant]

REACTIONS (3)
  - NEUTROPENIA [None]
  - MYALGIA [None]
  - MUSCLE SPASMS [None]
